FAERS Safety Report 25584099 (Version 2)
Quarter: 2025Q3

REPORT INFORMATION
  Report Type: Spontaneous
  Country: JP (occurrence: JP)
  Receive Date: 20250721
  Receipt Date: 20250804
  Transmission Date: 20251020
  Serious: Yes (Death, Other)
  Sender: BRISTOL-MYERS SQUIBB COMPANY
  Company Number: JP-BRISTOL-MYERS SQUIBB COMPANY-2025-101192

PATIENT
  Age: 70 Year
  Sex: Female

DRUGS (4)
  1. VIDAZA [Suspect]
     Active Substance: AZACITIDINE
     Indication: Myelodysplastic syndrome
     Route: 042
  2. VENCLEXTA [Concomitant]
     Active Substance: VENETOCLAX
     Indication: Myelodysplastic syndrome
  3. ACLARUBICIN HYDROCHLORIDE [Concomitant]
     Active Substance: ACLARUBICIN HYDROCHLORIDE
     Indication: Myelodysplastic syndrome
  4. ENOCITABINE [Concomitant]
     Active Substance: ENOCITABINE
     Indication: Myelodysplastic syndrome

REACTIONS (1)
  - Death [Fatal]
